FAERS Safety Report 8460799-4 (Version None)
Quarter: 2012Q2

REPORT INFORMATION
  Report Type: 
  Country: None (occurrence: None)
  Receive Date: 20120623
  Receipt Date: 20120613
  Transmission Date: 20120825
  Serious: Yes (Death, Other)
  Sender: FDA-Public Use
  Company Number: JP-TEVA-342177ISR

PATIENT

DRUGS (1)
  1. FUROSEMIDE [Suspect]

REACTIONS (2)
  - DEATH [None]
  - PANCYTOPENIA [None]
